FAERS Safety Report 15745867 (Version 2)
Quarter: 2019Q1

REPORT INFORMATION
  Report Type: Report from Study
  Country: CO (occurrence: CO)
  Receive Date: 20181220
  Receipt Date: 20190119
  Transmission Date: 20190417
  Serious: Yes (Hospitalization, Other)
  Sender: FDA-Public Use
  Company Number: CO-ASTELLAS-2018US053993

PATIENT
  Age: 53 Year
  Sex: Female

DRUGS (4)
  1. PREDNISOLONE. [Concomitant]
     Active Substance: PREDNISOLONE
     Indication: PRODUCT USED FOR UNKNOWN INDICATION
     Route: 048
  2. MYCOPHENOLATE [Concomitant]
     Active Substance: MYCOPHENOLIC ACID
     Indication: PRODUCT USED FOR UNKNOWN INDICATION
     Route: 048
  3. URSACOL [Concomitant]
     Active Substance: URSODIOL
     Indication: PRODUCT USED FOR UNKNOWN INDICATION
     Route: 048
  4. TACROLIMUS. [Suspect]
     Active Substance: TACROLIMUS
     Indication: LIVER TRANSPLANT
     Dosage: 5 MG, ONCE DAILY (1 MG X 5)
     Route: 048
     Dates: start: 20120613

REACTIONS (6)
  - Rash generalised [Unknown]
  - Liver transplant rejection [Recovering/Resolving]
  - Pruritus [Unknown]
  - Treatment noncompliance [Unknown]
  - Liver transplant rejection [Unknown]
  - Blood alkaline phosphatase abnormal [Unknown]

NARRATIVE: CASE EVENT DATE: 201712
